FAERS Safety Report 21773764 (Version 1)
Quarter: 2022Q4

REPORT INFORMATION
  Report Type: Spontaneous
  Country: CA (occurrence: CA)
  Receive Date: 20221223
  Receipt Date: 20221223
  Transmission Date: 20230112
  Serious: Yes (Other)
  Sender: FDA-Public Use
  Company Number: CA-009507513-1806CAN000680

PATIENT
  Age: 66 Year
  Sex: Female

DRUGS (15)
  1. ZENHALE [Suspect]
     Active Substance: FORMOTEROL FUMARATE\MOMETASONE FUROATE
     Indication: Product used for unknown indication
     Dosage: 2 DOSAGE FORMS, 2 EVERY 1 DAY, DOSAGE FORM: AEROSOL, 2 PUFF(S), BID
     Route: 065
     Dates: start: 2016
  2. ZENHALE [Suspect]
     Active Substance: FORMOTEROL FUMARATE\MOMETASONE FUROATE
     Indication: Asthma
     Dosage: 1 DOSAGE FORM, 2 EVERY 1 DAY
     Route: 065
  3. ZENHALE [Suspect]
     Active Substance: FORMOTEROL FUMARATE\MOMETASONE FUROATE
     Dosage: UNK
     Route: 065
  4. VENTOLIN [Suspect]
     Active Substance: ALBUTEROL SULFATE
     Indication: Product used for unknown indication
     Dosage: UNK UNK, PRN
     Route: 065
     Dates: start: 2013
  5. PREDNISONE [Suspect]
     Active Substance: PREDNISONE
     Indication: Product used for unknown indication
     Dosage: 8.0 MILLIGRAM, 1 EVERY 1 DAY (1 EVERY 24 HOURS)
     Route: 048
     Dates: start: 2014
  6. ADVAIR HFA [Suspect]
     Active Substance: FLUTICASONE PROPIONATE\SALMETEROL XINAFOATE
     Indication: Asthma
     Dosage: 1 PUFF (S) BID
     Route: 065
     Dates: start: 2014
  7. ADVAIR HFA [Suspect]
     Active Substance: FLUTICASONE PROPIONATE\SALMETEROL XINAFOATE
     Indication: Product used for unknown indication
     Dosage: UNK
     Route: 065
  8. AZITHROMYCIN [Suspect]
     Active Substance: AZITHROMYCIN
     Indication: Product used for unknown indication
     Dosage: 250 MILLIGRAM, 1 EVERY 1 DAY
     Route: 048
  9. AZITHROMYCIN [Suspect]
     Active Substance: AZITHROMYCIN
     Dosage: 250 MG, UNK
     Route: 048
  10. AZITHROMYCIN [Suspect]
     Active Substance: AZITHROMYCIN
     Dosage: 250 MILLIGRAM, THREE TIMES A WEEK
     Route: 048
     Dates: start: 2014
  11. SPIRIVA [Suspect]
     Active Substance: TIOTROPIUM BROMIDE MONOHYDRATE
     Indication: Product used for unknown indication
     Dosage: 18 MICROGRAM, 1 EVERY 1 DAY (1 EVERY 24 HOURS)
     Route: 065
     Dates: start: 2016
  12. MEPOLIZUMAB [Suspect]
     Active Substance: MEPOLIZUMAB
     Indication: Asthma
     Dosage: 100 MILLIGRAM, UNK
     Route: 042
  13. CETIRIZINE HYDROCHLORIDE [Concomitant]
     Active Substance: CETIRIZINE HYDROCHLORIDE
     Indication: Product used for unknown indication
     Dosage: 20 MILLIGRAM, 1 EVERY 1 DAY (1 EVERY 24 HRS)
     Route: 065
  14. RABEPRAZOLE SODIUM [Concomitant]
     Active Substance: RABEPRAZOLE SODIUM
     Indication: Product used for unknown indication
     Dosage: FORMULATION: ENTERIC COATED TABLET
     Route: 065
  15. ROSUVASTATIN CALCIUM [Concomitant]
     Active Substance: ROSUVASTATIN CALCIUM
     Indication: Product used for unknown indication
     Dosage: UNK
     Route: 065

REACTIONS (16)
  - Full blood count abnormal [Unknown]
  - Blood pressure increased [Not Recovered/Not Resolved]
  - Body temperature increased [Not Recovered/Not Resolved]
  - Lung diffusion test decreased [Unknown]
  - Cataract [Unknown]
  - Cough [Not Recovered/Not Resolved]
  - Drug dependence [Unknown]
  - Heart rate increased [Not Recovered/Not Resolved]
  - Nasal disorder [Unknown]
  - Nasopharyngitis [Recovered/Resolved]
  - Obstructive airways disorder [Unknown]
  - Pyrexia [Unknown]
  - Restrictive pulmonary disease [Unknown]
  - Therapeutic response decreased [Unknown]
  - Type 2 diabetes mellitus [Unknown]
  - Asthma [Unknown]

NARRATIVE: CASE EVENT DATE: 20171117
